FAERS Safety Report 18462821 (Version 1)
Quarter: 2020Q4

REPORT INFORMATION
  Report Type: Spontaneous
  Country: FR (occurrence: FR)
  Receive Date: 20201104
  Receipt Date: 20201104
  Transmission Date: 20210114
  Serious: Yes (Death, Hospitalization, Other)
  Sender: FDA-Public Use
  Company Number: FR-PFIZER INC-2020424402

PATIENT
  Age: 40 Year
  Sex: Female
  Weight: 172 kg

DRUGS (5)
  1. PACLITAXEL. [Suspect]
     Active Substance: PACLITAXEL
     Indication: BREAST CANCER METASTATIC
     Dosage: 90 MG/M2, CYCLIC (ON DAY 1, DAY 8, DAY 15)
     Route: 042
     Dates: start: 202003
  2. PALBOCICLIB [Suspect]
     Active Substance: PALBOCICLIB
     Indication: BREAST CANCER METASTATIC
     Dosage: UNK
     Route: 065
     Dates: start: 201808, end: 202002
  3. ENANTONE [LEUPRORELIN] [Suspect]
     Active Substance: LEUPROLIDE ACETATE
     Indication: BREAST CANCER METASTATIC
     Dosage: UNK
     Route: 065
     Dates: start: 201808, end: 202002
  4. PACLITAXEL. [Suspect]
     Active Substance: PACLITAXEL
     Dosage: 90 MG/M2, CYCLIC
     Route: 042
     Dates: start: 20200424, end: 20200803
  5. FEMARA [Suspect]
     Active Substance: LETROZOLE
     Indication: BREAST CANCER METASTATIC
     Dosage: UNK
     Route: 065
     Dates: start: 201808, end: 202002

REACTIONS (18)
  - Generalised oedema [Fatal]
  - Blood bicarbonate decreased [Unknown]
  - Blood calcium decreased [Unknown]
  - Hepatitis fulminant [Unknown]
  - Blood potassium increased [Unknown]
  - Hepatomegaly [Unknown]
  - Anaemia [Unknown]
  - Hepatic failure [Fatal]
  - Portal hypertension [Unknown]
  - Lipase increased [Unknown]
  - Acute kidney injury [Fatal]
  - Cell death [Unknown]
  - Neoplasm progression [Unknown]
  - Blood phosphorus increased [Unknown]
  - Blood sodium decreased [Unknown]
  - C-reactive protein increased [Unknown]
  - Neutrophil count increased [Unknown]
  - White blood cell count increased [Unknown]

NARRATIVE: CASE EVENT DATE: 2019
